FAERS Safety Report 9110088 (Version 1)
Quarter: 2013Q1

REPORT INFORMATION
  Report Type: Spontaneous
  Country: US (occurrence: US)
  Receive Date: 20130222
  Receipt Date: 20130222
  Transmission Date: 20140127
  Serious: Yes (Death, Life-Threatening, Hospitalization)
  Sender: FDA-Public Use
  Company Number: US-JNJFOC-20130207220

PATIENT
  Age: 50 Year
  Sex: Female
  Weight: 53.71 kg

DRUGS (16)
  1. TOPAMAX [Suspect]
     Indication: BIPOLAR DISORDER
     Route: 048
     Dates: start: 20120329
  2. DACOMITINIB [Suspect]
     Indication: NON-SMALL CELL LUNG CANCER
     Route: 048
     Dates: start: 20120726, end: 20120922
  3. DOXYCYCLINE [Suspect]
     Indication: NON-SMALL CELL LUNG CANCER
     Route: 048
     Dates: start: 20120726, end: 20120822
  4. MORPHINE SULPHATE [Suspect]
     Indication: PAIN
     Route: 048
     Dates: start: 20120327
  5. PRAZOSIN HYDROCHLORIDE [Suspect]
     Indication: HYPERTENSION
     Route: 048
     Dates: start: 20120810
  6. OXYCODONE [Suspect]
     Indication: PAIN
     Route: 048
     Dates: start: 20120810
  7. CYMBALTA [Suspect]
     Indication: BIPOLAR DISORDER
     Route: 048
     Dates: start: 20120327
  8. WELLBUTRIN [Suspect]
     Indication: BIPOLAR DISORDER
     Route: 048
     Dates: start: 20120327
  9. ZYPREXA [Suspect]
     Indication: BIPOLAR DISORDER
     Dosage: ^7.5^ 20 MG PER DAY
     Route: 048
     Dates: start: 20120327
  10. CLONAZEPAM [Suspect]
     Indication: BIPOLAR DISORDER
     Route: 048
     Dates: start: 20120327
  11. PERCOCET [OXYCODONE HYDROCHLORIDE,PARACETAMOL] [Suspect]
     Indication: BIPOLAR DISORDER
     Dosage: 5-325 MG EVERY 6 HOUR
     Route: 048
     Dates: start: 20120327
  12. OXYCONTIN [Suspect]
     Indication: PAIN
     Dosage: 5-325 MG EVERY 6 HOUR
     Route: 048
     Dates: start: 20120810
  13. IRON [Concomitant]
     Indication: PROPHYLAXIS
     Route: 065
  14. VITAMINE B12 [Concomitant]
     Indication: PROPHYLAXIS
     Route: 065
  15. CITRACAL [Concomitant]
     Indication: PROPHYLAXIS
     Route: 065
  16. FOLIC ACID [Concomitant]
     Indication: PROPHYLAXIS
     Route: 065

REACTIONS (8)
  - Gastrointestinal haemorrhage [Fatal]
  - Hypovolaemic shock [Fatal]
  - Cardio-respiratory arrest [Unknown]
  - Gastric dilatation [Unknown]
  - Small intestinal obstruction [Unknown]
  - Hypotension [Unknown]
  - Hypoxia [Unknown]
  - Haematemesis [Unknown]
